FAERS Safety Report 9806937 (Version 2)
Quarter: 2014Q1

REPORT INFORMATION
  Report Type: Spontaneous
  Country: US (occurrence: US)
  Receive Date: 20140109
  Receipt Date: 20140117
  Transmission Date: 20141002
  Serious: No
  Sender: FDA-Public Use
  Company Number: US-009507513-1401USA002478

PATIENT
  Age: 23 Year
  Sex: Female
  Weight: 78.91 kg

DRUGS (2)
  1. NEXPLANON [Suspect]
     Indication: CONTRACEPTION
     Dosage: UNK
     Route: 059
     Dates: start: 20131107
  2. FLUOXETINE [Concomitant]
     Dosage: UNK

REACTIONS (4)
  - Limb injury [Unknown]
  - Limb discomfort [Unknown]
  - Device kink [Unknown]
  - Depression [Unknown]
